FAERS Safety Report 24608177 (Version 2)
Quarter: 2024Q4

REPORT INFORMATION
  Report Type: Spontaneous
  Country: ES (occurrence: ES)
  Receive Date: 20241112
  Receipt Date: 20241115
  Transmission Date: 20250114
  Serious: Yes (Other)
  Sender: PFIZER
  Company Number: ES-009507513-2410ESP013623

PATIENT
  Age: 57 Year
  Sex: Female

DRUGS (3)
  1. AXITINIB [Suspect]
     Active Substance: AXITINIB
     Indication: Renal cell carcinoma recurrent
     Dosage: UNK
     Dates: start: 20221004, end: 202304
  2. PEMBROLIZUMAB [Suspect]
     Active Substance: PEMBROLIZUMAB
     Indication: Renal cell carcinoma recurrent
     Dosage: UNK
     Dates: start: 20220913
  3. ZOMETA [Suspect]
     Active Substance: ZOLEDRONIC ACID
     Indication: Renal cell carcinoma recurrent
     Dosage: UNK
     Dates: start: 20220913, end: 202304

REACTIONS (1)
  - Nephropathy toxic [Unknown]

NARRATIVE: CASE EVENT DATE: 20230101
